FAERS Safety Report 6745844-6 (Version None)
Quarter: 2010Q2

REPORT INFORMATION
  Report Type: 
  Country: None (occurrence: None)
  Receive Date: 20100528
  Receipt Date: 20100524
  Transmission Date: 20101027
  Serious: Yes (Life-Threatening)
  Sender: FDA-Public Use
  Company Number: JP-BRISTOL-MYERS SQUIBB COMPANY-14574032

PATIENT
  Age: 69 Year
  Sex: Male
  Weight: 52 kg

DRUGS (14)
  1. ERBITUX [Suspect]
     Indication: RECTAL CANCER
     Dosage: 375MG:11DEC08-26DEC08(15 DAYS)(1 IN 2 WEEK)
     Route: 042
     Dates: start: 20081127, end: 20081226
  2. IRINOTECAN HCL [Concomitant]
     Indication: RECTAL CANCER
     Route: 042
     Dates: start: 20081129, end: 20081226
  3. CHLOR-TRIMETON [Concomitant]
     Indication: PREMEDICATION
     Route: 042
     Dates: start: 20081129, end: 20081226
  4. DECADRON [Concomitant]
     Indication: PREMEDICATION
     Route: 042
     Dates: start: 20081129, end: 20081226
  5. ZOFRAN [Concomitant]
     Indication: ANTIEMETIC SUPPORTIVE CARE
     Route: 042
     Dates: start: 20081129, end: 20081226
  6. TENORMIN [Concomitant]
     Indication: HYPERTENSION
     Route: 048
  7. ADALAT [Concomitant]
     Indication: HYPERTENSION
     Dosage: FORMULATION = TABLETS;2 DF=2 TABS.
     Route: 048
  8. ROHYPNOL [Concomitant]
     Indication: INSOMNIA
     Dosage: 1DF=1 TAB
     Route: 048
  9. ADONA [Concomitant]
     Indication: HAEMORRHAGE
     Dosage: FORMULATION = TABLETS;3 DF=3 TABS
     Route: 048
  10. TRANSAMIN [Concomitant]
     Indication: HAEMORRHAGE
     Dosage: 3DF=3 TABS
     Route: 048
  11. CYANOCOBALAMIN [Concomitant]
     Indication: NEUROPATHY PERIPHERAL
     Dosage: 3DF=3 TABS
     Route: 048
  12. BIOFERMIN [Concomitant]
     Indication: DIARRHOEA
     Route: 048
  13. TANNALBIN [Concomitant]
     Indication: DIARRHOEA
     Route: 048
  14. HIRUDOID [Concomitant]
     Indication: DERMATITIS

REACTIONS (1)
  - ANAL ULCER [None]
